FAERS Safety Report 20678170 (Version 1)
Quarter: 2022Q2

REPORT INFORMATION
  Report Type: Spontaneous
  Country: US (occurrence: None)
  Receive Date: 20220404
  Receipt Date: 20220404
  Transmission Date: 20220721
  Serious: Yes (Hospitalization)
  Sender: FDA-Public Use
  Company Number: None

PATIENT
  Sex: Male
  Weight: 105.23 kg

DRUGS (19)
  1. CYCLOPHOSPHAMIDE [Suspect]
     Active Substance: CYCLOPHOSPHAMIDE
     Indication: Plasma cell myeloma
     Dosage: FREQUENCY : WEEKLY;?
     Route: 048
     Dates: start: 202112
  2. MORPHINE SULFATE 30MG [Concomitant]
  3. OXYCODONE [Concomitant]
     Active Substance: OXYCODONE
  4. GABAPENTIN [Concomitant]
     Active Substance: GABAPENTIN
  5. VITAMIN C 500MG [Concomitant]
  6. GARLIC [Concomitant]
     Active Substance: GARLIC
  7. MIRALAX 17GM [Concomitant]
  8. PROMETHAZINE 12.5MG [Concomitant]
  9. SENOKOT 8.6MG [Concomitant]
  10. VITAMINS [Concomitant]
     Active Substance: VITAMINS
  11. ZOFRAN ODT 5MG [Concomitant]
  12. POTASSIUM CHLORIDE [Concomitant]
     Active Substance: POTASSIUM CHLORIDE
  13. XGFNA SUCUTANEOUS SOLUTION 120MG/1.7ML SC [Concomitant]
  14. DECADRON 10MG [Concomitant]
  15. ACYCLOVIR [Concomitant]
     Active Substance: ACYCLOVIR
  16. OXYCODONE [Concomitant]
     Active Substance: OXYCODONE
  17. NINLARO 4MG WEEKLY [Concomitant]
  18. DOXYCYCLINE HYCLATE [Concomitant]
     Active Substance: DOXYCYCLINE HYCLATE
  19. FLOMAX 0.4MG [Concomitant]

REACTIONS (1)
  - Rectal haemorrhage [None]
